FAERS Safety Report 8409626-1 (Version None)
Quarter: 2012Q2

REPORT INFORMATION
  Report Type: 
  Country: None (occurrence: None)
  Receive Date: 20120529
  Receipt Date: 20120314
  Transmission Date: 20120825
  Serious: No
  Sender: FDA-Public Use
  Company Number: 2012-00088

PATIENT
  Age: 65 Year
  Sex: Male

DRUGS (1)
  1. ZICAM COLD REMEDY NASAL GEL SWABS [Suspect]
     Indication: NASOPHARYNGITIS
     Dosage: USED IN EACH NOSTRIL TWICE DAILY
     Dates: start: 20020101, end: 20111001

REACTIONS (2)
  - PAROSMIA [None]
  - RHINALGIA [None]
